FAERS Safety Report 7959257-2 (Version None)
Quarter: 2011Q4

REPORT INFORMATION
  Report Type: 
  Country: None (occurrence: None)
  Receive Date: 20111206
  Receipt Date: 20111201
  Transmission Date: 20120403
  Serious: Yes (Other)
  Sender: FDA-Public Use
  Company Number: DE-PFIZER INC-2011293293

PATIENT
  Age: 74 Year
  Sex: Female

DRUGS (3)
  1. SOMATROPIN [Suspect]
     Dosage: 0.2 MG, 1X/DAY
     Dates: start: 20070111
  2. SOMATROPIN [Suspect]
     Dosage: 0.1 MG, 1X/DAY
     Dates: start: 20070320
  3. SOMATROPIN [Suspect]
     Indication: HYPOPITUITARISM
     Dosage: 0.1 MG, 1X/DAY X 7 DAYS WEEKLY

REACTIONS (1)
  - BASAL CELL CARCINOMA [None]
